FAERS Safety Report 14922211 (Version 1)
Quarter: 2018Q2

REPORT INFORMATION
  Report Type: Spontaneous
  Country: US (occurrence: US)
  Receive Date: 20180522
  Receipt Date: 20180522
  Transmission Date: 20180711
  Serious: No
  Sender: FDA-Public Use
  Company Number: US-TEVA-773419ACC

PATIENT
  Sex: Male

DRUGS (12)
  1. INSULIN [Concomitant]
     Active Substance: INSULIN NOS
  2. LEVOTHYROXINE. [Concomitant]
     Active Substance: LEVOTHYROXINE
  3. NITROSTAT [Concomitant]
     Active Substance: NITROGLYCERIN
  4. METHADONE [Concomitant]
     Active Substance: METHADONE HYDROCHLORIDE
  5. XARELTO [Concomitant]
     Active Substance: RIVAROXABAN
  6. FLOMAX [Concomitant]
     Active Substance: TAMSULOSIN HYDROCHLORIDE
  7. DEXAMETHASON [Concomitant]
     Active Substance: DEXAMETHASONE
  8. LACTULOSE. [Concomitant]
     Active Substance: LACTULOSE
  9. HYDROCHLOROTHIAZIDE. [Concomitant]
     Active Substance: HYDROCHLOROTHIAZIDE
  10. PREDNISOLONE. [Concomitant]
     Active Substance: PREDNISOLONE
  11. PENICILLIN G POTASSIUM. [Suspect]
     Active Substance: PENICILLIN G POTASSIUM
     Route: 065
  12. IBUPROFEN. [Concomitant]
     Active Substance: IBUPROFEN

REACTIONS (1)
  - Drug hypersensitivity [Unknown]
